FAERS Safety Report 6600003-2 (Version None)
Quarter: 2010Q1

REPORT INFORMATION
  Report Type: 
  Country: None (occurrence: None)
  Receive Date: 20100224
  Receipt Date: 20100215
  Transmission Date: 20100710
  Serious: Yes (Other)
  Sender: FDA-Public Use
  Company Number: US-JNJFOC-20100202845

PATIENT
  Age: 55 Year
  Sex: Female
  Weight: 103.42 kg

DRUGS (3)
  1. EXTRA STRENGTH TYLENOL [Suspect]
     Route: 048
  2. EXTRA STRENGTH TYLENOL [Suspect]
     Indication: PAIN
     Route: 048
  3. METHOCARBAMOL [Concomitant]
     Indication: MUSCLE SPASMS

REACTIONS (3)
  - FUNGAEMIA [None]
  - FUNGAL SKIN INFECTION [None]
  - PRODUCT QUALITY ISSUE [None]
